FAERS Safety Report 7943306-1 (Version None)
Quarter: 2011Q4

REPORT INFORMATION
  Report Type: 
  Country: None (occurrence: None)
  Receive Date: 20111128
  Receipt Date: 20111124
  Transmission Date: 20120403
  Serious: Yes (Death)
  Sender: FDA-Public Use
  Company Number: PHHY2010AU092653

PATIENT
  Sex: Female

DRUGS (4)
  1. ZOLEDRONOC ACID [Suspect]
     Dosage: 5 MG, UNK
     Route: 042
     Dates: start: 20090831
  2. SOLONE [Concomitant]
     Dosage: 1 MG, DAILY
     Route: 048
     Dates: start: 19980101, end: 20100101
  3. ENEAS [Concomitant]
     Dosage: UNK UKN, UNK
  4. METHOTREXATE [Concomitant]
     Dosage: 5 MG, WEAKLY
     Route: 048
     Dates: start: 19980101, end: 20100101

REACTIONS (1)
  - CARDIOVASCULAR DISORDER [None]
